FAERS Safety Report 20662250 (Version 5)
Quarter: 2022Q2

REPORT INFORMATION
  Report Type: Report from Study
  Country: None (occurrence: US)
  Receive Date: 20220401
  Receipt Date: 20220523
  Transmission Date: 20220721
  Serious: Yes (Death, Hospitalization)
  Sender: FDA-Public Use
  Company Number: US-AKCEA THERAPEUTICS, INC.-2022IS003072

PATIENT
  Age: 59 Year
  Sex: Female

DRUGS (2)
  1. TEGSEDI [Suspect]
     Active Substance: INOTERSEN SODIUM
     Indication: Hereditary neuropathic amyloidosis
     Route: 058
     Dates: start: 20220211, end: 20220507
  2. DEVICE [Suspect]
     Active Substance: DEVICE

REACTIONS (16)
  - Influenza [Unknown]
  - Infection [Unknown]
  - Urine protein/creatinine ratio abnormal [Unknown]
  - Glucose urine present [Unknown]
  - Urine abnormality [Unknown]
  - Urinary sediment present [Unknown]
  - Fungal test positive [Unknown]
  - Specific gravity urine abnormal [Unknown]
  - White blood cells urine positive [Unknown]
  - Bacterial test positive [Unknown]
  - Blood creatinine increased [Unknown]
  - Red blood cells urine positive [Unknown]
  - Urinary casts [Unknown]
  - Haematuria [Unknown]
  - Platelet count decreased [Unknown]
  - Acute respiratory failure [Fatal]

NARRATIVE: CASE EVENT DATE: 20220307
